FAERS Safety Report 5464477-5 (Version None)
Quarter: 2007Q3

REPORT INFORMATION
  Report Type: 
  Country: None (occurrence: None)
  Receive Date: 20070921
  Receipt Date: 20070911
  Transmission Date: 20080115
  Serious: Yes (Hospitalization)
  Sender: FDA-Public Use
  Company Number: US-SHR-US-2007-034022

PATIENT
  Age: 45 Year
  Sex: Male

DRUGS (2)
  1. BETASERON [Suspect]
     Indication: SECONDARY PROGRESSIVE MULTIPLE SCLEROSIS
     Dosage: UNK, UNK
     Route: 058
     Dates: start: 19991013
  2. GLIPIZIDE [Concomitant]
     Dosage: 10 MG, UNK

REACTIONS (1)
  - DIABETIC KETOACIDOSIS [None]
